FAERS Safety Report 8122444-7 (Version None)
Quarter: 2012Q1

REPORT INFORMATION
  Report Type: 
  Country: None (occurrence: None)
  Receive Date: 20120208
  Receipt Date: 20120131
  Transmission Date: 20120608
  Serious: Yes (Other)
  Sender: FDA-Public Use
  Company Number: GB-BAYER-2012-010435

PATIENT
  Age: 60 Year
  Sex: Female

DRUGS (1)
  1. BETASERON [Suspect]
     Indication: MULTIPLE SCLEROSIS
     Dosage: UNK
     Route: 058
     Dates: start: 19990101

REACTIONS (5)
  - SKIN HYPERTROPHY [None]
  - INJECTION SITE NODULE [None]
  - INJECTION SITE REACTION [None]
  - PAIN [None]
  - GRANULOMA ANNULARE [None]
